FAERS Safety Report 21552077 (Version 1)
Quarter: 2022Q4

REPORT INFORMATION
  Report Type: Spontaneous
  Country: US (occurrence: None)
  Receive Date: 20221104
  Receipt Date: 20221104
  Transmission Date: 20230112
  Serious: No
  Sender: FDA-Public Use
  Company Number: 2022A339534

PATIENT
  Weight: 114.2 kg

DRUGS (1)
  1. SYMBICORT [Suspect]
     Active Substance: BUDESONIDE\FORMOTEROL FUMARATE DIHYDRATE
     Indication: Asthma
     Dosage: 160/4.5 1-2 PUFFS AS REQUIRED
     Route: 055

REACTIONS (2)
  - Back injury [Unknown]
  - Intentional product misuse [Not Recovered/Not Resolved]
